FAERS Safety Report 4640597-X (Version None)
Quarter: 2005Q2

REPORT INFORMATION
  Report Type: 
  Country: None (occurrence: None)
  Receive Date: 20050419
  Receipt Date: 20050310
  Transmission Date: 20051028
  Serious: Yes (Hospitalization)
  Sender: FDA-Public Use
  Company Number: 800333

PATIENT
  Age: 64 Year
  Sex: Male
  Weight: 71.3 kg

DRUGS (14)
  1. EXTRANEAL                   (EXTRANEAL (ICODEXTRIN 7.5%) [Suspect]
     Indication: PERITONEAL DIALYSIS
     Dosage: 2 L;QD: INTRAPERITONEAL
     Route: 033
     Dates: end: 20050309
  2. EXTRANEAL                   (EXTRANEAL (ICODEXTRIN 7.5%) [Suspect]
  3. CALCITRIOL [Concomitant]
  4. SODIUM BICARBONATE/SODIUM CARBONATE [Concomitant]
  5. ANHYDROUS/SODIUM BORATE DECAHYDRATE/SODIUM PERBORATE [Concomitant]
  6. CALCIUM ACETATE [Concomitant]
  7. NITRENDIPINE [Concomitant]
  8. DOXAZOSIN [Concomitant]
  9. CLONIDINE [Concomitant]
  10. METOPROLOL [Concomitant]
  11. ACTRAPID HUMAN [Concomitant]
  12. LANTUS [Concomitant]
  13. ARANESP [Concomitant]
  14. DIANEAL [Concomitant]

REACTIONS (1)
  - PERITONITIS [None]
